FAERS Safety Report 9717038 (Version 2)
Quarter: 2015Q3

REPORT INFORMATION
  Report Type: Spontaneous
  Country: US (occurrence: US)
  Receive Date: 20131127
  Receipt Date: 20150804
  Transmission Date: 20151125
  Serious: No
  Sender: FDA-Public Use
  Company Number: US-GILEAD-2009-0020621

PATIENT
  Age: 80 Year
  Sex: Female
  Weight: 63.5 kg

DRUGS (11)
  1. DIGOXIN. [Concomitant]
     Active Substance: DIGOXIN
  2. LASIX [Concomitant]
     Active Substance: FUROSEMIDE
  3. RELAFEN [Concomitant]
     Active Substance: NABUMETONE
  4. SYMBICORT [Suspect]
     Active Substance: BUDESONIDE\FORMOTEROL FUMARATE DIHYDRATE
  5. LETAIRIS [Suspect]
     Active Substance: AMBRISENTAN
     Indication: PULMONARY ARTERIAL HYPERTENSION
     Route: 048
     Dates: start: 20090219
  6. COSOPT [Concomitant]
     Active Substance: DORZOLAMIDE HYDROCHLORIDE\TIMOLOL MALEATE
  7. FORTICAL [Concomitant]
     Active Substance: CALCITONIN SALMON
  8. MISOPROSTOL. [Concomitant]
     Active Substance: MISOPROSTOL
  9. COUMADIN [Concomitant]
     Active Substance: WARFARIN SODIUM
  10. NEURONTIN [Concomitant]
     Active Substance: GABAPENTIN
  11. TYLENOL [Concomitant]
     Active Substance: ACETAMINOPHEN

REACTIONS (1)
  - Eye irritation [Unknown]
